FAERS Safety Report 9285450 (Version 1)
Quarter: 2013Q2

REPORT INFORMATION
  Report Type: Spontaneous
  Country: US (occurrence: US)
  Receive Date: 20130513
  Receipt Date: 20130513
  Transmission Date: 20140414
  Serious: No
  Sender: FDA-Public Use
  Company Number: US-PFIZER INC-2013144407

PATIENT
  Age: 42 Year
  Sex: Male
  Weight: 90.7 kg

DRUGS (1)
  1. CAMPTOSAR [Suspect]
     Indication: SMALL INTESTINE CARCINOMA
     Dosage: UNK
     Dates: start: 2013

REACTIONS (2)
  - Muscle twitching [Unknown]
  - Chest pain [Recovered/Resolved]
